FAERS Safety Report 5506435-8 (Version None)
Quarter: 2007Q4

REPORT INFORMATION
  Report Type: 
  Country: None (occurrence: None)
  Receive Date: 20071101
  Receipt Date: 20071101
  Transmission Date: 20080405
  Serious: Yes (Hospitalization)
  Sender: FDA-Public Use
  Company Number: None

PATIENT
  Sex: Female
  Weight: 75.1 kg

DRUGS (1)
  1. CISPLATIN [Suspect]
     Indication: OVARIAN CANCER
     Dosage: 185 MG -100 MG/M2-  ONCE   INTRAPERITO
     Route: 033
     Dates: start: 20071009, end: 20071009

REACTIONS (6)
  - HYPOKALAEMIA [None]
  - HYPOMAGNESAEMIA [None]
  - HYPONATRAEMIA [None]
  - NAUSEA [None]
  - RENAL FAILURE ACUTE [None]
  - VOMITING [None]
